FAERS Safety Report 8251915-8 (Version None)
Quarter: 2012Q2

REPORT INFORMATION
  Report Type: 
  Country: None (occurrence: None)
  Receive Date: 20120402
  Receipt Date: 20120323
  Transmission Date: 20120825
  Serious: Yes (Hospitalization)
  Sender: FDA-Public Use
  Company Number: IT-TEVA-331007ISR

PATIENT
  Sex: Male

DRUGS (5)
  1. CICLOFOSFAMIDE [Concomitant]
     Dates: start: 20110610, end: 20110912
  2. DOXORUBICINA CLOROIDRATO [Suspect]
     Indication: NON-HODGKIN'S LYMPHOMA
     Dosage: 47 MILLIGRAM;
     Dates: start: 20110610, end: 20110617
  3. RITUXIMAB [Concomitant]
     Dates: start: 20110610, end: 20110912
  4. PREDNISONE TAB [Concomitant]
     Dates: start: 20110610, end: 20110912
  5. VINCRISTINE [Concomitant]
     Dates: start: 20110610, end: 20110912

REACTIONS (1)
  - ACUTE MYOCARDIAL INFARCTION [None]
